FAERS Safety Report 4765499-X (Version None)
Quarter: 2005Q3

REPORT INFORMATION
  Report Type: 
  Country: None (occurrence: None)
  Receive Date: 20050912
  Receipt Date: 20050901
  Transmission Date: 20060218
  Serious: Yes (Death, Other)
  Sender: FDA-Public Use
  Company Number: US-JNJFOC-20050900234

PATIENT
  Sex: Female
  Weight: 118.84 kg

DRUGS (22)
  1. INFLIXIMAB [Suspect]
     Route: 042
  2. INFLIXIMAB [Suspect]
     Indication: RHEUMATOID ARTHRITIS
     Route: 042
  3. CELEBREX [Concomitant]
  4. ARAVA [Concomitant]
  5. PREDNISONE TAB [Concomitant]
  6. GLUCOTROL [Concomitant]
  7. ACTOS [Concomitant]
  8. PRANDIN [Concomitant]
  9. TENORMIN [Concomitant]
  10. SYNTHROID [Concomitant]
  11. PREMARIN [Concomitant]
  12. LASIX [Concomitant]
  13. ADALAT [Concomitant]
  14. COZAAR [Concomitant]
  15. MULTI-VITAMIN [Concomitant]
  16. MULTI-VITAMIN [Concomitant]
  17. MULTI-VITAMIN [Concomitant]
  18. MULTI-VITAMIN [Concomitant]
  19. MULTI-VITAMIN [Concomitant]
  20. MULTI-VITAMIN [Concomitant]
  21. MULTI-VITAMIN [Concomitant]
  22. MULTI-VITAMIN [Concomitant]

REACTIONS (2)
  - DIARRHOEA [None]
  - SEPSIS [None]
